FAERS Safety Report 6154642-6 (Version None)
Quarter: 2009Q2

REPORT INFORMATION
  Report Type: 
  Country: None (occurrence: None)
  Receive Date: 20090414
  Receipt Date: 20090408
  Transmission Date: 20091009
  Serious: Yes (Other)
  Sender: FDA-Public Use
  Company Number: AU-ELI_LILLY_AND_COMPANY-AU200808004732

PATIENT
  Sex: Female

DRUGS (6)
  1. BYETTA [Suspect]
     Indication: DIABETES MELLITUS
     Dosage: 10 UG, 2/D
     Route: 065
     Dates: start: 20071201, end: 20080819
  2. INSULIN [Concomitant]
     Indication: DIABETES MELLITUS
  3. DIONEX [Concomitant]
     Dosage: 1 G, 2/D
  4. GLEEVEC [Concomitant]
     Indication: CHRONIC MYELOID LEUKAEMIA
  5. METOPROLOL TARTRATE [Concomitant]
  6. MICARDIS HCT [Concomitant]

REACTIONS (1)
  - PANCREATIC ENZYMES INCREASED [None]
